FAERS Safety Report 12970365 (Version 1)
Quarter: 2016Q4

REPORT INFORMATION
  Report Type: Spontaneous
  Country: US (occurrence: US)
  Receive Date: 20161122
  Receipt Date: 20161122
  Transmission Date: 20170207
  Serious: No
  Sender: FDA-Public Use
  Company Number: None

PATIENT
  Age: 61 Year
  Sex: Female

DRUGS (16)
  1. ATOVAQUONE. [Concomitant]
     Active Substance: ATOVAQUONE
  2. FLUTICASONE [Concomitant]
     Active Substance: FLUTICASONE\FLUTICASONE PROPIONATE
  3. PREDNISONE. [Concomitant]
     Active Substance: PREDNISONE
  4. ACYCLOVIR. [Concomitant]
     Active Substance: ACYCLOVIR
  5. K-TAB [Concomitant]
     Active Substance: POTASSIUM CHLORIDE
  6. NPH INSULIN [Concomitant]
     Active Substance: INSULIN BEEF
  7. LISINOPRIL. [Concomitant]
     Active Substance: LISINOPRIL
  8. ONDANSETRON [Concomitant]
     Active Substance: ONDANSETRON
  9. GABAPENTIN. [Concomitant]
     Active Substance: GABAPENTIN
  10. SUMATRIPTAN. [Concomitant]
     Active Substance: SUMATRIPTAN
  11. CETIRIZINE [Concomitant]
     Active Substance: CETIRIZINE HYDROCHLORIDE
  12. PANTOPRAZOLE [Concomitant]
     Active Substance: PANTOPRAZOLE SODIUM
  13. NORCO [Concomitant]
     Active Substance: ACETAMINOPHEN\HYDROCODONE BITARTRATE
  14. METFORMIN [Concomitant]
     Active Substance: METFORMIN HYDROCHLORIDE
  15. REVLIMID [Suspect]
     Active Substance: LENALIDOMIDE
     Indication: PLASMA CELL MYELOMA
     Route: 048
     Dates: start: 20161028, end: 20161029
  16. SIMVASTATIN. [Concomitant]
     Active Substance: SIMVASTATIN

REACTIONS (3)
  - Ear swelling [None]
  - Hypersensitivity [None]
  - Swelling face [None]

NARRATIVE: CASE EVENT DATE: 20161030
